FAERS Safety Report 8428826-8 (Version None)
Quarter: 2012Q2

REPORT INFORMATION
  Report Type: 
  Country: None (occurrence: None)
  Receive Date: 20120604
  Receipt Date: 20120529
  Transmission Date: 20120825
  Serious: Yes (Life-Threatening, Other)
  Sender: FDA-Public Use
  Company Number: 2012-002024

PATIENT
  Age: 80 Year
  Sex: Female

DRUGS (2)
  1. ACTONEL [Suspect]
     Dosage: ORAL
     Route: 048
  2. ZOLEDRONIC ACID [Suspect]
     Dosage: 5 MG, INTRAVENOUS
     Route: 042

REACTIONS (8)
  - FEELING ABNORMAL [None]
  - TOOTHACHE [None]
  - EYE PAIN [None]
  - VISUAL IMPAIRMENT [None]
  - ASTHENIA [None]
  - HEADACHE [None]
  - MALAISE [None]
  - ANGINA PECTORIS [None]
